FAERS Safety Report 8087101-4 (Version None)
Quarter: 2012Q1

REPORT INFORMATION
  Report Type: 
  Country: None (occurrence: None)
  Receive Date: 20120128
  Receipt Date: 20110520
  Transmission Date: 20120608
  Serious: No
  Sender: FDA-Public Use
  Company Number: US-ABBOTT-11P-163-0727795-00

PATIENT
  Age: 49 Year
  Sex: Female

DRUGS (7)
  1. HUMIRA [Suspect]
     Indication: PSORIASIS
     Route: 058
     Dates: start: 20090501
  2. CALCIPOTRIENE [Concomitant]
     Indication: PSORIASIS
  3. CRESTOR [Concomitant]
     Indication: BLOOD CHOLESTEROL INCREASED
  4. PROCTOZONE [Concomitant]
     Indication: PSORIASIS
  5. CLOBETASOL [Concomitant]
     Indication: PSORIASIS
  6. COAL TAR [Concomitant]
     Indication: PSORIASIS
  7. TRIAMCINOLONE [Concomitant]
     Indication: PSORIASIS

REACTIONS (4)
  - BLOOD GLUCOSE INCREASED [None]
  - FEMALE STERILISATION [None]
  - PSORIASIS [None]
  - HYPERTENSION [None]
